FAERS Safety Report 16770979 (Version 1)
Quarter: 2019Q3

REPORT INFORMATION
  Report Type: Spontaneous
  Country: GB (occurrence: GB)
  Receive Date: 20190904
  Receipt Date: 20190904
  Transmission Date: 20191005
  Serious: Yes (Other)
  Sender: FDA-Public Use
  Company Number: GB-TEVA-2019-GB-1100497

PATIENT
  Age: 52 Year
  Sex: Male
  Weight: 86 kg

DRUGS (7)
  1. MIRTAZAPINE. [Concomitant]
     Active Substance: MIRTAZAPINE
     Dosage: 17:00-1 TABLET, 1  DOSAGE FORMS
     Dates: start: 20181130
  2. METHADONE [Concomitant]
     Active Substance: METHADONE HYDROCHLORIDE
     Dosage: 60ML
     Dates: start: 20190315, end: 20190320
  3. RIVAROXABAN [Concomitant]
     Active Substance: RIVAROXABAN
     Dosage: 08:00-1 TABLETS, 1 DOSAGE FORMS
     Dates: start: 20190307
  4. GABAPENTIN. [Concomitant]
     Active Substance: GABAPENTIN
     Dosage: 08:00-4 CAPSULES, 7:00-4 CAPSULES 8 DOSAGE FORMS
     Dates: start: 20181201
  5. CLARITHROMYCIN. [Suspect]
     Active Substance: CLARITHROMYCIN
     Dosage: 500 MG
     Dates: start: 20190321
  6. OLANZAPINE. [Concomitant]
     Active Substance: OLANZAPINE
     Dosage: 17:00-1 TABLET, 1 DOSAGE FORMS
     Dates: start: 20181130
  7. IBUPROFEN. [Concomitant]
     Active Substance: IBUPROFEN
     Dosage: 3 DOSAGE FORMS
     Dates: start: 20190129, end: 20190206

REACTIONS (1)
  - Vasculitis [Recovered/Resolved]

NARRATIVE: CASE EVENT DATE: 20190321
